FAERS Safety Report 13498424 (Version 3)
Quarter: 2017Q2

REPORT INFORMATION
  Report Type: Spontaneous
  Country: JP (occurrence: JP)
  Receive Date: 20170501
  Receipt Date: 20170523
  Transmission Date: 20170830
  Serious: Yes (Hospitalization, Other)
  Sender: FDA-Public Use
  Company Number: JP-ROCHE-1926694

PATIENT
  Age: 67 Year
  Sex: Female
  Weight: 41 kg

DRUGS (8)
  1. KADCYLA [Suspect]
     Active Substance: ADO-TRASTUZUMAB EMTANSINE
     Indication: BREAST CANCER
     Dosage: TREATMENT LINE: 2ND LINE?TREATMENT CYCLE OF THIS MEDICINE NUMBER: 1
     Route: 041
     Dates: start: 20170322, end: 20170412
  2. RANMARK [Concomitant]
     Active Substance: DENOSUMAB
     Dosage: DOSAGE IS UNCERTAIN.
     Route: 065
  3. MYSLEE [Concomitant]
     Active Substance: ZOLPIDEM TARTRATE
     Dosage: DOSAGE IS UNCERTAIN.
     Route: 065
  4. PERJETA [Suspect]
     Active Substance: PERTUZUMAB
     Indication: BREAST CANCER
     Dosage: DOSAGE IS UNCERTAIN.?420MG/14ML
     Route: 041
     Dates: start: 20151015, end: 20170208
  5. TS-1 [Concomitant]
     Active Substance: GIMERACIL\OTERACIL\TEGAFUR
     Indication: BREAST CANCER
     Route: 048
     Dates: start: 20161005, end: 20170208
  6. MS CONTIN [Concomitant]
     Active Substance: MORPHINE SULFATE
     Dosage: DOSAGE IS UNCERTAIN.
     Route: 065
     Dates: start: 20170412
  7. HERCEPTIN [Suspect]
     Active Substance: TRASTUZUMAB
     Indication: BREAST CANCER
     Dosage: DOSAGE IS UNCERTAIN.
     Route: 041
     Dates: start: 2011, end: 20170208
  8. DENOTAS [Concomitant]
     Active Substance: CALCIUM CARBONATE\CHOLECALCIFEROL\MAGNESIUM CARBONATE
     Dosage: DOSAGE IS UNCERTAIN.
     Route: 048

REACTIONS (2)
  - Hypophagia [Not Recovered/Not Resolved]
  - Cardiac failure [Unknown]

NARRATIVE: CASE EVENT DATE: 20170414
